FAERS Safety Report 13582537 (Version 1)
Quarter: 2017Q2

REPORT INFORMATION
  Report Type: Report from Study
  Country: JP (occurrence: JP)
  Receive Date: 20170525
  Receipt Date: 20170525
  Transmission Date: 20170830
  Serious: Yes (Other)
  Sender: FDA-Public Use
  Company Number: JP-TEVA-771680ISR

PATIENT
  Age: 36 Year
  Sex: Female

DRUGS (10)
  1. LUTEUM VAGINAL SUPPOSITORY 400MG [Suspect]
     Active Substance: PROGESTERONE
     Indication: PROGESTIN REPLACEMENT THERAPY
     Dosage: 400 MILLIGRAM DAILY;
     Route: 067
     Dates: start: 20161024
  2. LUTEUM VAGINAL SUPPOSITORY 400MG [Suspect]
     Active Substance: PROGESTERONE
     Dosage: 800 MILLIGRAM DAILY;
     Route: 067
     Dates: start: 20161025, end: 20161120
  3. PREMARIN [Concomitant]
     Active Substance: ESTROGENS, CONJUGATED
     Dosage: 1.25 MILLIGRAM DAILY;
     Route: 048
     Dates: start: 20161016, end: 20161019
  4. PROGEHORMON [Concomitant]
     Dosage: 50 MILLIGRAM DAILY;
     Route: 030
     Dates: start: 20161109
  5. PREMARIN [Concomitant]
     Active Substance: ESTROGENS, CONJUGATED
     Dosage: 2.5 MILLIGRAM DAILY;
     Route: 048
     Dates: start: 20161020, end: 20161029
  6. PREMARIN [Concomitant]
     Active Substance: ESTROGENS, CONJUGATED
     Indication: PROGESTIN REPLACEMENT THERAPY
     Dosage: .625 MILLIGRAM DAILY;
     Route: 048
     Dates: start: 20161012, end: 20161015
  7. PROGEHORMON [Concomitant]
     Dosage: 50 MILLIGRAM DAILY;
     Route: 030
     Dates: start: 20161116
  8. PREMARIN [Concomitant]
     Active Substance: ESTROGENS, CONJUGATED
     Dosage: 3.75 MILLIGRAM DAILY;
     Route: 048
     Dates: start: 20161030, end: 20161216
  9. PROGEHORMON [Concomitant]
     Indication: PROGESTIN REPLACEMENT THERAPY
     Dosage: 50 MILLIGRAM DAILY;
     Route: 030
     Dates: start: 20161029
  10. PROGEHORMON [Concomitant]
     Dosage: 50 MILLIGRAM DAILY;
     Route: 030
     Dates: start: 20161119, end: 20161209

REACTIONS (1)
  - Genital haemorrhage [Unknown]
